FAERS Safety Report 9595020 (Version 1)
Quarter: 2013Q4

REPORT INFORMATION
  Report Type: Spontaneous
  Country: US (occurrence: US)
  Receive Date: 20131004
  Receipt Date: 20131004
  Transmission Date: 20140711
  Serious: No
  Sender: FDA-Public Use
  Company Number: US-PURDUE-USA-2012-0093787

PATIENT
  Age: 36 Year
  Sex: Male

DRUGS (3)
  1. BUTRANS [Suspect]
     Indication: INTERVERTEBRAL DISC PROTRUSION
     Dosage: 5 MCG, WEEKLY
     Route: 062
     Dates: start: 20120906, end: 20120924
  2. PRILOSEC                           /00661201/ [Concomitant]
     Indication: PRODUCT USED FOR UNKNOWN INDICATION
     Dosage: 1 TABLET, DAILY
     Route: 048
  3. GAS X [Concomitant]
     Indication: ABDOMINAL DISTENSION
     Route: 048

REACTIONS (10)
  - Drug withdrawal syndrome [Unknown]
  - Application site odour [Not Recovered/Not Resolved]
  - Abdominal distension [Unknown]
  - Product adhesion issue [Unknown]
  - Abdominal pain [Not Recovered/Not Resolved]
  - Application site pruritus [Not Recovered/Not Resolved]
  - Application site erythema [Not Recovered/Not Resolved]
  - Application site vesicles [Not Recovered/Not Resolved]
  - Fatigue [Unknown]
  - Application site perspiration [Unknown]
